FAERS Safety Report 8585677 (Version 4)
Quarter: 2014Q4

REPORT INFORMATION
  Report Type: Spontaneous
  Country: US (occurrence: US)
  Receive Date: 20120912
  Receipt Date: 20141104
  Transmission Date: 20150529
  Serious: Yes (Hospitalization, Other)
  Sender: FDA-Public Use
  Company Number: US-GLAXOSMITHKLINE-A0971518A

PATIENT
  Age: 32 Year
  Sex: Female

DRUGS (5)
  1. FLOLAN [Suspect]
     Active Substance: EPOPROSTENOL SODIUM
     Indication: PULMONARY ARTERIAL HYPERTENSION
     Dosage: 23 NG/KG/MIN79.5 NG/KG/MIN, CONCENTRATION 135,000 NG/ML, PUMP RATE 90 ML/DAY, VIAL STRENGTH 1.5 MG
     Route: 042
     Dates: start: 20100217
  2. FLOLAN [Suspect]
     Active Substance: EPOPROSTENOL SODIUM
     Dosage: UNK
     Dates: start: 20100217
  3. WARFARIN [Concomitant]
     Active Substance: WARFARIN
  4. FLOLAN [Suspect]
     Active Substance: EPOPROSTENOL SODIUM
     Dosage: 79.5 NG/KG/MIN
  5. REVATIO [Concomitant]
     Active Substance: SILDENAFIL CITRATE

REACTIONS (7)
  - Nasopharyngitis [Unknown]
  - Dizziness [Unknown]
  - Asthenia [Unknown]
  - Pneumonia [Recovered/Resolved]
  - Nausea [Unknown]
  - Malaise [Recovered/Resolved]
  - Furuncle [Recovered/Resolved]

NARRATIVE: CASE EVENT DATE: 20120216
